FAERS Safety Report 5132298-9 (Version None)
Quarter: 2006Q4

REPORT INFORMATION
  Report Type: 
  Country: None (occurrence: None)
  Receive Date: 20061023
  Receipt Date: 20061011
  Transmission Date: 20070319
  Serious: Yes (Other)
  Sender: FDA-Public Use
  Company Number: GB-JNJFOC-20060502364

PATIENT
  Age: 13 Year
  Sex: Male

DRUGS (2)
  1. RISPERDAL [Suspect]
     Indication: AGGRESSION
     Route: 065
  2. RISPERDAL [Suspect]
     Indication: AUTISM
     Dosage: FOR 2 TO 3 WEEKS
     Route: 065

REACTIONS (3)
  - ARTHRALGIA [None]
  - AUTISM [None]
  - BLOOD PROLACTIN INCREASED [None]
